FAERS Safety Report 16264871 (Version 1)
Quarter: 2019Q2

REPORT INFORMATION
  Report Type: Spontaneous
  Country: US (occurrence: US)
  Receive Date: 20190502
  Receipt Date: 20190502
  Transmission Date: 20190711
  Serious: Yes (Other)
  Sender: FDA-Public Use
  Company Number: US-BAYER-2019-085526

PATIENT
  Sex: Female

DRUGS (1)
  1. MAGNEVIST [Suspect]
     Active Substance: GADOPENTETATE DIMEGLUMINE
     Indication: NUCLEAR MAGNETIC RESONANCE IMAGING
     Dosage: UNK UNK, ONCE

REACTIONS (19)
  - Feeling abnormal [None]
  - Skin hypertrophy [None]
  - Tremor [None]
  - Disturbance in attention [None]
  - Anhedonia [None]
  - Skin fibrosis [None]
  - Gadolinium deposition disease [None]
  - Arthralgia [None]
  - Anxiety [None]
  - Emotional distress [None]
  - Asthenia [None]
  - Fibrosis [None]
  - Nephrogenic systemic fibrosis [None]
  - Bone pain [None]
  - Hypoaesthesia [None]
  - Injury [None]
  - Contrast media deposition [None]
  - Headache [None]
  - Pain [None]
